FAERS Safety Report 11690644 (Version 1)
Quarter: 2015Q4

REPORT INFORMATION
  Report Type: Spontaneous
  Country: CA (occurrence: CA)
  Receive Date: 20151102
  Receipt Date: 20151102
  Transmission Date: 20160304
  Serious: Yes (Hospitalization, Other)
  Sender: FDA-Public Use
  Company Number: CA-TEVA-605130USA

PATIENT
  Age: 22 Year
  Sex: Male

DRUGS (6)
  1. BUPROPION. [Suspect]
     Active Substance: BUPROPION
     Indication: SUBSTANCE USE
     Route: 045
  2. BUPROPION. [Suspect]
     Active Substance: BUPROPION
     Indication: SUBSTANCE USE
     Route: 042
  3. CLONAZEPAM. [Concomitant]
     Active Substance: CLONAZEPAM
     Indication: ANXIETY
     Dosage: 1 MG 4 TIMES DAILY AS REQUIRED FOR ANXIETY
     Route: 065
  4. QUETIAPINE [Concomitant]
     Active Substance: QUETIAPINE
     Dosage: 100 MG AT BEDTIME
     Route: 065
  5. CITALOPRAM [Concomitant]
     Active Substance: CITALOPRAM HYDROBROMIDE
     Dosage: 40MG DAILY
     Route: 065
  6. TRAZODONE [Concomitant]
     Active Substance: TRAZODONE HYDROCHLORIDE
     Dosage: 50 MG AT BEDTIME
     Route: 065

REACTIONS (4)
  - Hallucination, visual [Recovered/Resolved]
  - Persecutory delusion [Recovered/Resolved]
  - Peripheral venous disease [Unknown]
  - Injection site pain [Unknown]
